FAERS Safety Report 6215997-7 (Version None)
Quarter: 2009Q2

REPORT INFORMATION
  Report Type: 
  Country: None (occurrence: None)
  Receive Date: 20090605
  Receipt Date: 20090522
  Transmission Date: 20091009
  Serious: Yes (Life-Threatening, Hospitalization, Other)
  Sender: FDA-Public Use
  Company Number: JO-BAYER-200911678BYL

PATIENT
  Age: 46 Year
  Sex: Male
  Weight: 56 kg

DRUGS (13)
  1. FLUDARA [Suspect]
     Indication: ACUTE LYMPHOCYTIC LEUKAEMIA
     Dosage: TOTAL DAILY DOSE: 50 MG  UNIT DOSE: 50 MG
     Route: 042
     Dates: start: 20080917, end: 20080922
  2. DENOSINE [Suspect]
     Indication: CYTOMEGALOVIRUS ENTEROCOLITIS
     Dosage: AS USED: 500 MG
     Route: 042
     Dates: start: 20081113, end: 20081124
  3. DENOSINE [Suspect]
     Dosage: AS USED: 250 MG
     Route: 042
     Dates: start: 20081125, end: 20081211
  4. BUSULFEX [Concomitant]
     Indication: ACUTE LYMPHOCYTIC LEUKAEMIA
     Dosage: AS USED: 90.56 MG
     Route: 042
     Dates: start: 20080917, end: 20080922
  5. DEPAKENE [Concomitant]
     Indication: CONVULSION PROPHYLAXIS
     Dosage: TOTAL DAILY DOSE: 400 MG  UNIT DOSE: 200 MG
     Route: 048
     Dates: start: 20080917, end: 20080922
  6. METHOTREXATE [Concomitant]
     Dosage: AS USED: 11.8 MG
     Route: 042
     Dates: start: 20081001, end: 20081001
  7. METHOTREXATE [Concomitant]
     Dosage: AS USED: 11.8 MG
     Route: 042
     Dates: start: 20080929, end: 20080929
  8. SANDIMMUNE [Concomitant]
     Indication: PROPHYLAXIS AGAINST GRAFT VERSUS HOST DISEASE
     Route: 042
     Dates: start: 20081112, end: 20081116
  9. SANDIMMUNE [Concomitant]
     Route: 042
     Dates: start: 20081117, end: 20081201
  10. SANDIMMUNE [Concomitant]
     Route: 042
     Dates: start: 20080925, end: 20081111
  11. NEORAL [Concomitant]
     Indication: PROPHYLAXIS AGAINST GRAFT VERSUS HOST DISEASE
     Route: 048
     Dates: start: 20081202, end: 20090108
  12. CONCENTRATED RED CELLS [Concomitant]
     Indication: PACKED RED BLOOD CELL TRANSFUSION
     Route: 042
     Dates: start: 20081012, end: 20081029
  13. PLATELETS [Concomitant]
     Indication: PLATELET TRANSFUSION
     Route: 042
     Dates: start: 20081001, end: 20090104

REACTIONS (14)
  - ACUTE GRAFT VERSUS HOST DISEASE IN INTESTINE [None]
  - ACUTE GRAFT VERSUS HOST DISEASE IN SKIN [None]
  - ANAEMIA [None]
  - CYTOMEGALOVIRUS ENTEROCOLITIS [None]
  - CYTOMEGALOVIRUS VIRAEMIA [None]
  - FEBRILE NEUTROPENIA [None]
  - HYPOPROTEINAEMIA [None]
  - PANCYTOPENIA [None]
  - PLATELET COUNT DECREASED [None]
  - PNEUMONIA [None]
  - STOMATITIS [None]
  - THROMBOCYTOPENIA [None]
  - THROMBOTIC MICROANGIOPATHY [None]
  - VIRAL HAEMORRHAGIC CYSTITIS [None]
